FAERS Safety Report 16769059 (Version 1)
Quarter: 2019Q3

REPORT INFORMATION
  Report Type: Spontaneous
  Country: US (occurrence: US)
  Receive Date: 20190903
  Receipt Date: 20190903
  Transmission Date: 20191005
  Serious: No
  Sender: FDA-Public Use
  Company Number: US-SA-2019SA242195

PATIENT
  Age: 60 Year
  Sex: Female

DRUGS (1)
  1. KEVZARA [Suspect]
     Active Substance: SARILUMAB
     Dosage: 200 MG
     Route: 058
     Dates: start: 201807, end: 201908

REACTIONS (4)
  - Rash generalised [Recovered/Resolved]
  - Urticaria [Recovered/Resolved]
  - Injection site reaction [Recovering/Resolving]
  - Injection site exfoliation [Recovering/Resolving]

NARRATIVE: CASE EVENT DATE: 2019
